FAERS Safety Report 16147689 (Version 1)
Quarter: 2019Q2

REPORT INFORMATION
  Report Type: Spontaneous
  Country: US (occurrence: US)
  Receive Date: 20190402
  Receipt Date: 20190402
  Transmission Date: 20190711
  Serious: Yes (Other)
  Sender: FDA-Public Use
  Company Number: US-ALLERGAN-1842018US

PATIENT
  Age: 27 Year
  Sex: Female

DRUGS (1)
  1. LILETTA [Suspect]
     Active Substance: LEVONORGESTREL
     Indication: CONTRACEPTION
     Dosage: 52 MG, SINGLE
     Route: 015
     Dates: start: 201708

REACTIONS (6)
  - Headache [Unknown]
  - Complication of device removal [Unknown]
  - Menorrhagia [Unknown]
  - Abdominal pain upper [Unknown]
  - Device breakage [Unknown]
  - Uterine perforation [Unknown]

NARRATIVE: CASE EVENT DATE: 201708
